FAERS Safety Report 13369435 (Version 3)
Quarter: 2017Q3

REPORT INFORMATION
  Report Type: Spontaneous
  Country: US (occurrence: US)
  Receive Date: 20170324
  Receipt Date: 20170927
  Transmission Date: 20171127
  Serious: Yes (Death, Hospitalization, Other)
  Sender: FDA-Public Use
  Company Number: US-ASTELLAS-2017US008692

PATIENT
  Age: 79 Year
  Sex: Male

DRUGS (1)
  1. XTANDI [Suspect]
     Active Substance: ENZALUTAMIDE
     Indication: HORMONE-REFRACTORY PROSTATE CANCER
     Route: 048
     Dates: start: 20170206, end: 20170310

REACTIONS (8)
  - Malignant pleural effusion [Unknown]
  - Asthenia [Unknown]
  - Fracture [Unknown]
  - Malignant neoplasm progression [Unknown]
  - Fatigue [Unknown]
  - Pneumonia [Unknown]
  - Depression [Unknown]
  - Death [Fatal]

NARRATIVE: CASE EVENT DATE: 20170223
